FAERS Safety Report 10483871 (Version 1)
Quarter: 2014Q3

REPORT INFORMATION
  Report Type: Spontaneous
  Country: US (occurrence: None)
  Receive Date: 20140929
  Receipt Date: 20140929
  Transmission Date: 20150326
  Serious: Yes (Disabling, Other)
  Sender: FDA-Public Use
  Company Number: None

PATIENT
  Age: 38 Year

DRUGS (1)
  1. ESCITALOPRAM [Suspect]
     Active Substance: ESCITALOPRAM OXALATE
     Indication: PANIC DISORDER
     Dosage: 1 TABLET
     Route: 048
     Dates: start: 20140711, end: 20140818

REACTIONS (6)
  - Headache [None]
  - Palpitations [None]
  - Depression [None]
  - Tremor [None]
  - Anxiety [None]
  - Decreased activity [None]

NARRATIVE: CASE EVENT DATE: 20140824
